FAERS Safety Report 6800903-4 (Version None)
Quarter: 2010Q2

REPORT INFORMATION
  Report Type: 
  Country: None (occurrence: None)
  Receive Date: 20100629
  Receipt Date: 20100616
  Transmission Date: 20101027
  Serious: Yes (Other)
  Sender: FDA-Public Use
  Company Number: PHHY2010GR39273

PATIENT
  Age: 43 Year
  Sex: Female

DRUGS (1)
  1. DESFERAL [Suspect]
     Indication: THALASSAEMIA

REACTIONS (2)
  - GENERALISED OEDEMA [None]
  - PAIN [None]
